FAERS Safety Report 5908250-X (Version None)
Quarter: 2008Q4

REPORT INFORMATION
  Report Type: 
  Country: None (occurrence: None)
  Receive Date: 20081006
  Receipt Date: 20081001
  Transmission Date: 20090506
  Serious: Yes (Hospitalization)
  Sender: FDA-Public Use
  Company Number: FR-WYE-G02269308

PATIENT
  Sex: Male

DRUGS (1)
  1. EFFEXOR [Suspect]
     Dosage: OVERDOSE AMOUNT : 40 TO 70 TABLETS IN ONE SINGLE DOSE
     Route: 048
     Dates: start: 20080813, end: 20080813

REACTIONS (7)
  - FALL [None]
  - HYPOXIA [None]
  - INTENTIONAL OVERDOSE [None]
  - MALAISE [None]
  - RHABDOMYOLYSIS [None]
  - STATUS EPILEPTICUS [None]
  - SUICIDE ATTEMPT [None]
